FAERS Safety Report 25686385 (Version 2)
Quarter: 2025Q3

REPORT INFORMATION
  Report Type: Spontaneous
  Country: US (occurrence: US)
  Receive Date: 20250815
  Receipt Date: 20250818
  Transmission Date: 20251021
  Serious: Yes (Life-Threatening, Hospitalization, Other)
  Sender: PFIZER
  Company Number: US-PFIZER INC-202500163654

PATIENT
  Age: 30 Year
  Sex: Male

DRUGS (2)
  1. METHYLPREDNISOLONE SODIUM SUCCINATE [Suspect]
     Active Substance: METHYLPREDNISOLONE SODIUM SUCCINATE
     Indication: Asthmatic crisis
     Dosage: DAILY, AT DOSES 40-320 MG/DAY (HIGH DOSES)
     Route: 042
     Dates: start: 1989
  2. VECURONIUM [Suspect]
     Active Substance: VECURONIUM BROMIDE
     Indication: Asthmatic crisis
     Route: 042
     Dates: start: 1989

REACTIONS (1)
  - Myopathy [Recovered/Resolved]

NARRATIVE: CASE EVENT DATE: 19890101
